FAERS Safety Report 8585148-2 (Version None)
Quarter: 2012Q3

REPORT INFORMATION
  Report Type: 
  Country: None (occurrence: None)
  Receive Date: 20120810
  Receipt Date: 20120806
  Transmission Date: 20120928
  Serious: Yes (Other)
  Sender: FDA-Public Use
  Company Number: PHHY2012BR041156

PATIENT
  Sex: Male

DRUGS (6)
  1. COMBIVENT [Suspect]
     Indication: DYSPNOEA
     Dosage: AT NIGHT
  2. AMINOPHYLLIN [Concomitant]
     Indication: EMPHYSEMA
     Dosage: 2 DF, DAILY (FROM 3 YEARS AGO)
     Route: 048
  3. ONBREZ [Suspect]
     Dosage: QD
  4. ALBUTEROL [Suspect]
     Dosage: AT NIGHT
  5. FORMOTEROL FUMARATE [Suspect]
     Indication: EMPHYSEMA
     Dosage: 1 DF IN THE MORNING AND AT NIGHT (APPROXIMATELY ONE YEAR AGO))
  6. OMEPRAZOLE [Concomitant]
     Indication: GASTRIC DISORDER
     Dosage: 1 DF, DAILY

REACTIONS (8)
  - EMPHYSEMA [None]
  - COUGH [None]
  - INFLUENZA [None]
  - MALAISE [None]
  - GAIT DISTURBANCE [None]
  - SPEECH DISORDER [None]
  - DYSPNOEA [None]
  - CONDITION AGGRAVATED [None]
